FAERS Safety Report 16055824 (Version 2)
Quarter: 2019Q1

REPORT INFORMATION
  Report Type: Report from Study
  Country: IT (occurrence: IT)
  Receive Date: 20190311
  Receipt Date: 20190315
  Transmission Date: 20190418
  Serious: Yes (Hospitalization, Other)
  Sender: FDA-Public Use
  Company Number: IT-ROCHE-2278358

PATIENT

DRUGS (4)
  1. RITUXIMAB. [Suspect]
     Active Substance: RITUXIMAB
     Indication: CHRONIC LYMPHOCYTIC LEUKAEMIA
     Dosage: ADMINISTERED ON DAY 1 AT A DOSE OF 375 MG/M2 DURING THE FIRST ADMINISTRATION
     Route: 042
  2. RITUXIMAB. [Suspect]
     Active Substance: RITUXIMAB
     Dosage: FOR THE SUBSEQUENT CYCLES
     Route: 042
  3. CHLORAMBUCIL [Suspect]
     Active Substance: CHLORAMBUCIL
     Indication: CHRONIC LYMPHOCYTIC LEUKAEMIA
     Dosage: 1 MG/KG FOR EACH CYCLE EVERY 28 DAYS, GIVEN AT A FIXED DAILY DOSE OF 10 MG STARTING FROM DAY 1 AND R
     Route: 065
  4. BENDAMUSTINE [Suspect]
     Active Substance: BENDAMUSTINE
     Indication: CHRONIC LYMPHOCYTIC LEUKAEMIA
     Dosage: 90 MG/M2 (ADMINISTERED AT BASELINE 70 MG/M2 IN 19 PATIENTS, 17%).
     Route: 065

REACTIONS (5)
  - Skin reaction [Unknown]
  - Haematotoxicity [Unknown]
  - Infusion related reaction [Unknown]
  - Respiratory disorder [Unknown]
  - Neutropenia [Unknown]
